FAERS Safety Report 9780923 (Version 2)
Quarter: 2014Q1

REPORT INFORMATION
  Report Type: Report from Study
  Country: HN (occurrence: HN)
  Receive Date: 20131224
  Receipt Date: 20140107
  Transmission Date: 20141002
  Serious: Yes (Death, Other)
  Sender: FDA-Public Use
  Company Number: PHHY2013HN150129

PATIENT
  Age: 71 Year
  Sex: Female

DRUGS (4)
  1. GLIVEC [Suspect]
     Indication: CHRONIC MYELOID LEUKAEMIA
     Dosage: 400 MG
     Dates: start: 20130107
  2. GLIVEC [Suspect]
     Dosage: 200 MG, UNK
  3. GLIVEC [Suspect]
     Dosage: 100 MG, UNK
  4. IRBESARTAN [Concomitant]
     Indication: HYPERTENSION
     Dosage: 150 MG, QD

REACTIONS (3)
  - Ischaemic cerebral infarction [Fatal]
  - Pancytopenia [Unknown]
  - Leukopenia [Unknown]
